FAERS Safety Report 5624249-5 (Version None)
Quarter: 2008Q1

REPORT INFORMATION
  Report Type: 
  Country: None (occurrence: None)
  Receive Date: 20080213
  Receipt Date: 20080201
  Transmission Date: 20080703
  Serious: Yes (Death)
  Sender: FDA-Public Use
  Company Number: IT-ELI_LILLY_AND_COMPANY-IT200802000412

PATIENT
  Sex: Female

DRUGS (2)
  1. XIGRIS [Suspect]
     Indication: SEPTIC SHOCK
     Dosage: 60 MG, DAILY (1/D)
     Route: 042
     Dates: start: 20060325, end: 20060327
  2. FRAXIPARIN /00889603/ [Concomitant]
     Dosage: UNK, UNKNOWN

REACTIONS (1)
  - INTRA-ABDOMINAL HAEMORRHAGE [None]
